FAERS Safety Report 7995331-2 (Version None)
Quarter: 2011Q4

REPORT INFORMATION
  Report Type: 
  Country: None (occurrence: None)
  Receive Date: 20111220
  Receipt Date: 20111219
  Transmission Date: 20120403
  Serious: Yes (Other)
  Sender: FDA-Public Use
  Company Number: SG-BAYER-2011-121769

PATIENT
  Age: 83 Year
  Sex: Female

DRUGS (3)
  1. CLAVULANATE POTASSIUM [Suspect]
  2. COTRIM [Suspect]
  3. ACETYLSALICYLIC ACID SRT [Suspect]

REACTIONS (1)
  - RASH [None]
